FAERS Safety Report 25003620 (Version 1)
Quarter: 2025Q1

REPORT INFORMATION
  Report Type: Spontaneous
  Country: AU (occurrence: AU)
  Receive Date: 20250224
  Receipt Date: 20250224
  Transmission Date: 20250408
  Serious: Yes (Other)
  Sender: GILEAD
  Company Number: AU-GILEAD-2025-0704384

PATIENT
  Age: 28 Year
  Sex: Female

DRUGS (1)
  1. BIKTARVY [Suspect]
     Active Substance: BICTEGRAVIR SODIUM\EMTRICITABINE\TENOFOVIR ALAFENAMIDE FUMARATE
     Indication: Product used for unknown indication
     Route: 065

REACTIONS (3)
  - Thrombocytopenia [Unknown]
  - Portal hypertension [Unknown]
  - Hepatosplenomegaly [Unknown]
